FAERS Safety Report 6240164-0 (Version None)
Quarter: 2009Q2

REPORT INFORMATION
  Report Type: 
  Country: None (occurrence: None)
  Receive Date: 20090623
  Receipt Date: 20090615
  Transmission Date: 20091009
  Serious: Yes (Hospitalization)
  Sender: FDA-Public Use
  Company Number: BR-ASTRAZENECA-2009UW15315

PATIENT
  Age: 73 Year
  Sex: Male
  Weight: 82 kg

DRUGS (12)
  1. OMEPRAZOLE [Suspect]
     Indication: GASTRIC DISORDER
     Route: 048
     Dates: start: 20060101, end: 20090101
  2. CRESTOR [Suspect]
     Indication: HYPERCHOLESTEROLAEMIA
     Route: 048
     Dates: start: 20050101
  3. EXFORGE [Concomitant]
  4. ABLOK PLUS [Concomitant]
  5. METRI [Concomitant]
  6. SERTRALINE HYDROCHLORIDE [Concomitant]
  7. FRONTAL [Concomitant]
  8. VASOGARD [Concomitant]
  9. VITAMIN E [Concomitant]
  10. ASCORBIC ACID [Concomitant]
  11. METFORMIN HCL [Concomitant]
  12. INSULIN [Concomitant]

REACTIONS (3)
  - ARRHYTHMIA [None]
  - HYPOGLYCAEMIA [None]
  - PNEUMONIA [None]
